FAERS Safety Report 6105250-4 (Version None)
Quarter: 2009Q1

REPORT INFORMATION
  Report Type: 
  Country: None (occurrence: None)
  Receive Date: 20090306
  Receipt Date: 20090225
  Transmission Date: 20090719
  Serious: Yes (Hospitalization)
  Sender: FDA-Public Use
  Company Number: NO-JNJFOC-20090206114

PATIENT
  Sex: Male

DRUGS (5)
  1. REMICADE [Suspect]
     Indication: ANKYLOSING SPONDYLITIS
     Dosage: 8 DOSES OVER 7 MONTH PERIOD
     Route: 042
  2. PIROXICAM [Suspect]
     Indication: ANKYLOSING SPONDYLITIS
     Route: 048
  3. FURIX [Concomitant]
     Indication: HYPERTENSION
     Route: 048
  4. APROVEL [Concomitant]
     Indication: HYPERTENSION
     Route: 048
  5. PARALGIN FORTE [Concomitant]
     Indication: PAIN
     Dosage: 2 TABLETS UP TO 3 TIMES DAILY
     Route: 048

REACTIONS (4)
  - DUODENAL ULCER HAEMORRHAGE [None]
  - HAEMOPTYSIS [None]
  - PRODUCTIVE COUGH [None]
  - PULMONARY HAEMORRHAGE [None]
